FAERS Safety Report 23121663 (Version 1)
Quarter: 2023Q4

REPORT INFORMATION
  Report Type: Spontaneous
  Country: US (occurrence: US)
  Receive Date: 20231029
  Receipt Date: 20231029
  Transmission Date: 20240109
  Serious: No
  Sender: FDA-Public Use
  Company Number: US-ELI_LILLY_AND_COMPANY-US202310016049

PATIENT
  Sex: Female

DRUGS (1)
  1. HUMALOG MIX75/25 [Suspect]
     Active Substance: INSULIN LISPRO
     Indication: Product used for unknown indication
     Dosage: 38 U, UNKNOWN
     Route: 058

REACTIONS (7)
  - Dyspnoea [Unknown]
  - Dizziness [Unknown]
  - Nervousness [Unknown]
  - Glycosylated haemoglobin increased [Unknown]
  - Chest discomfort [Unknown]
  - Blood pressure decreased [Unknown]
  - Nausea [Unknown]
